FAERS Safety Report 13508857 (Version 2)
Quarter: 2017Q2

REPORT INFORMATION
  Report Type: Report from Study
  Country: US (occurrence: US)
  Receive Date: 20170503
  Receipt Date: 20170518
  Transmission Date: 20170830
  Serious: Yes (Other)
  Sender: FDA-Public Use
  Company Number: US-AMGEN-USASL2017064685

PATIENT
  Age: 71 Year
  Sex: Female
  Weight: 106.12 kg

DRUGS (1)
  1. PROLIA [Suspect]
     Active Substance: DENOSUMAB
     Indication: OSTEOPOROSIS POSTMENOPAUSAL
     Dosage: 60 MG, Q6MO
     Route: 058
     Dates: start: 20160620

REACTIONS (2)
  - Spinal compression fracture [Unknown]
  - Atypical femur fracture [Unknown]

NARRATIVE: CASE EVENT DATE: 20161024
